FAERS Safety Report 26090443 (Version 1)
Quarter: 2025Q4

REPORT INFORMATION
  Report Type: Spontaneous
  Country: US (occurrence: US)
  Receive Date: 20251126
  Receipt Date: 20251126
  Transmission Date: 20260117
  Serious: No
  Sender: TOLMAR
  Company Number: US-Tolmar-TLM-2025-08710

PATIENT

DRUGS (3)
  1. ELIGARD [Suspect]
     Active Substance: LEUPROLIDE ACETATE
     Indication: Product used for unknown indication
     Dosage: NOT ADMINISTERED ?BOX: 15498CUS EXP 04/2027?SN: 1038551754547?GTIN: 00362935227106?SYRINGE A: 1549B8
  2. ELIGARD [Suspect]
     Active Substance: LEUPROLIDE ACETATE
     Dosage: REPLACEMENT DOSE
  3. DEVICE [Suspect]
     Active Substance: DEVICE
     Indication: Product used for unknown indication
     Dosage: BOX: 15498CUS EXP 04/2027?SN: 1038551754547?GTIN: 00362935227106?SYRINGE A: 1549B8US EXP 04/2027?SYR

REACTIONS (2)
  - Intercepted product preparation error [Unknown]
  - Device leakage [Unknown]
